FAERS Safety Report 18256434 (Version 1)
Quarter: 2020Q3

REPORT INFORMATION
  Report Type: Spontaneous
  Country: US (occurrence: US)
  Receive Date: 20200911
  Receipt Date: 20200911
  Transmission Date: 20201103
  Serious: Yes (Other)
  Sender: FDA-Public Use
  Company Number: US-PFIZER INC-2020349599

PATIENT
  Age: 74 Year
  Sex: Male

DRUGS (2)
  1. WATER BACTERIOSTATIC [Suspect]
     Active Substance: WATER
     Indication: MEDICATION DILUTION
     Dosage: 4 VOLUMES
  2. ALBUMIN [Suspect]
     Active Substance: ALBUMIN HUMAN
     Indication: PLASMAPHERESIS
     Dosage: 5% ALBUMIN SOLUTION (25% ALBUMIN DILUTED WITH 4 VOLUMES STERILE WATER FOR INJECTION)

REACTIONS (1)
  - Haemolysis [Recovered/Resolved]
